FAERS Safety Report 13880283 (Version 1)
Quarter: 2017Q3

REPORT INFORMATION
  Report Type: Spontaneous
  Country: US (occurrence: US)
  Receive Date: 20170815
  Receipt Date: 20170815
  Transmission Date: 20171127
  Serious: Yes (Hospitalization)
  Sender: FDA-Public Use
  Company Number: None

PATIENT
  Sex: Female

DRUGS (1)
  1. SPIRIVA RESPIMAT [Suspect]
     Active Substance: TIOTROPIUM BROMIDE
     Route: 055

REACTIONS (7)
  - Dizziness [None]
  - Vision blurred [None]
  - Photopsia [None]
  - Exposure via eye contact [None]
  - Hot flush [None]
  - Ocular discomfort [None]
  - Accidental exposure to product [None]

NARRATIVE: CASE EVENT DATE: 20170415
